FAERS Safety Report 19446491 (Version 2)
Quarter: 2021Q2

REPORT INFORMATION
  Report Type: Report from Study
  Country: CA (occurrence: CA)
  Receive Date: 20210622
  Receipt Date: 20210630
  Transmission Date: 20210717
  Serious: Yes (Other)
  Sender: FDA-Public Use
  Company Number: CA-JNJFOC-20210631740

PATIENT
  Sex: Female
  Weight: 96 kg

DRUGS (6)
  1. REMICADE [Suspect]
     Active Substance: INFLIXIMAB
     Indication: COLITIS ULCERATIVE
     Route: 042
     Dates: end: 20210514
  2. LAMO TRIGINE [Concomitant]
     Indication: BORDERLINE PERSONALITY DISORDER
     Dosage: AT BEDTIME PRESCRIBED BY PSYCHIATRIST
     Route: 048
  3. TECTA [Concomitant]
     Active Substance: PANTOPRAZOLE MAGNESIUM
     Indication: GASTROOESOPHAGEAL REFLUX DISEASE
     Dosage: AT BEDTIME PRESCRIBED BY GASTROENTEROLOGIST
     Route: 048
  4. SULFATRIM [Concomitant]
     Active Substance: SULFAMETHOXAZOLE\TRIMETHOPRIM
     Indication: PRODUCT USED FOR UNKNOWN INDICATION
     Dosage: DS 800 DIN 00445282? 10 TAB 5 DAYS
     Route: 048
     Dates: start: 20210520, end: 20210525
  5. EFFEXOR [Concomitant]
     Active Substance: VENLAFAXINE HYDROCHLORIDE
     Indication: BORDERLINE PERSONALITY DISORDER
     Dosage: AT BEDTIME PRESCRIBED BY PSYCHIATRIST
     Route: 048
  6. FOLIC ACID. [Concomitant]
     Active Substance: FOLIC ACID
     Indication: COLITIS ULCERATIVE
     Dosage: AT BEDTIME PRESCRIBED BY GASTROENTEROLOGIST.
     Route: 048

REACTIONS (2)
  - Systemic lupus erythematosus [Not Recovered/Not Resolved]
  - Product dose omission issue [Unknown]
